FAERS Safety Report 4724396-6 (Version None)
Quarter: 2005Q3

REPORT INFORMATION
  Report Type: 
  Country: None (occurrence: None)
  Receive Date: 20050720
  Receipt Date: 20050720
  Transmission Date: 20060218
  Serious: Yes (Death)
  Sender: FDA-Public Use
  Company Number: None

PATIENT
  Age: 76 Year
  Sex: Male
  Weight: 74.3899 kg

DRUGS (1)
  1. BORTEZOMIB 2.5 MG IVP DOSE 1 CYCLE [Suspect]
     Indication: MULTIPLE MYELOMA
     Dates: start: 20050422

REACTIONS (1)
  - HEPATIC FAILURE [None]
